FAERS Safety Report 19072917 (Version 1)
Quarter: 2021Q1

REPORT INFORMATION
  Report Type: Spontaneous
  Country: AR (occurrence: AR)
  Receive Date: 20210330
  Receipt Date: 20210330
  Transmission Date: 20210420
  Serious: Yes (Hospitalization)
  Sender: FDA-Public Use
  Company Number: AR-PFIZER INC-2021293769

PATIENT
  Age: 77 Year
  Sex: Female

DRUGS (1)
  1. IBRANCE [Suspect]
     Active Substance: PALBOCICLIB
     Indication: BREAST CANCER METASTATIC
     Dosage: 125 MG, CYCLIC (DAILY, SCHEME 3X1)
     Dates: start: 20180622

REACTIONS (12)
  - Abdominal discomfort [Unknown]
  - Poisoning [Unknown]
  - Decreased appetite [Unknown]
  - Neoplasm progression [Unknown]
  - Malaise [Unknown]
  - Weight decreased [Unknown]
  - Diverticulum [Unknown]
  - Gait disturbance [Unknown]
  - Cardiac disorder [Unknown]
  - Pain [Unknown]
  - Colitis [Unknown]
  - Walking disability [Unknown]
